FAERS Safety Report 5599679-0 (Version None)
Quarter: 2008Q1

REPORT INFORMATION
  Report Type: 
  Country: None (occurrence: None)
  Receive Date: 20080123
  Receipt Date: 20080116
  Transmission Date: 20080703
  Serious: Yes (Hospitalization)
  Sender: FDA-Public Use
  Company Number: JP-JNJFOC-20070703483

PATIENT
  Sex: Female
  Weight: 69 kg

DRUGS (25)
  1. INFLIXIMAB [Suspect]
     Route: 042
  2. INFLIXIMAB [Suspect]
     Route: 042
  3. INFLIXIMAB [Suspect]
     Route: 042
  4. INFLIXIMAB [Suspect]
     Route: 042
  5. INFLIXIMAB [Suspect]
     Route: 042
  6. INFLIXIMAB [Suspect]
     Indication: PSORIASIS
     Route: 042
  7. ISCOTIN [Concomitant]
     Indication: ANTIBIOTIC PROPHYLAXIS
     Route: 048
  8. PYDOXAL [Concomitant]
     Indication: PROPHYLAXIS
     Route: 048
  9. GASTER D [Concomitant]
     Indication: GASTRITIS
     Dosage: START DATE BEFORE 18-OCT-2006
     Route: 048
  10. TANATRIL [Concomitant]
     Indication: HYPERTENSION
     Dosage: START DATE BEFORE 18-OCT-2006
     Route: 048
  11. CALSLOT [Concomitant]
     Route: 048
  12. CALSLOT [Concomitant]
     Indication: HYPERTENSION
     Dosage: START DATE BEFORE 18-OCT-2006
     Route: 048
  13. LIPITOR [Concomitant]
     Indication: CEREBROVASCULAR ACCIDENT PROPHYLAXIS
     Dosage: START DATE BEFORE 18-OCT-2006
     Route: 048
  14. URSO 250 [Concomitant]
     Route: 048
  15. URSO 250 [Concomitant]
     Indication: ALCOHOLIC LIVER DISEASE
     Dosage: START DATE BEFORE 18-OCT-2006
     Route: 048
  16. CABAGIN U [Concomitant]
     Indication: ALCOHOLIC LIVER DISEASE
     Dosage: START DATE BEFORE 18-OCT-2006
     Route: 048
  17. CAMLEED [Concomitant]
     Indication: GASTRITIS
     Dosage: START DATE BEFORE 18-OCT-2006
     Route: 048
  18. ALLELOCK [Concomitant]
     Indication: PSORIASIS
     Dosage: START DATE BEFORE 18-OCT-2006
     Route: 048
  19. MYSER [Concomitant]
     Indication: PSORIASIS
     Dosage: START DATE BEFORE 18-OCT-2006
     Route: 048
  20. ALOSITOL [Concomitant]
     Indication: HYPERURICAEMIA
     Route: 048
  21. LOCOID [Concomitant]
     Indication: PSORIASIS
     Dosage: START DATE BEFORE 18-OCT-2006
     Route: 061
  22. LIDOMEX [Concomitant]
     Indication: PSORIASIS
     Dosage: START DATE BEFORE 18-OCT-2006
     Route: 061
  23. MENTAX [Concomitant]
     Indication: TINEA INFECTION
     Route: 061
  24. NIZORAL [Concomitant]
     Indication: TINEA INFECTION
     Route: 061
  25. ALESION [Concomitant]
     Indication: PSORIASIS
     Route: 048

REACTIONS (1)
  - PEMPHIGOID [None]
